FAERS Safety Report 4801725-6 (Version None)
Quarter: 2005Q3

REPORT INFORMATION
  Report Type: 
  Country: None (occurrence: None)
  Receive Date: 20050929
  Receipt Date: 20050718
  Transmission Date: 20060218
  Serious: Yes (Disabling)
  Sender: FDA-Public Use
  Company Number: 05P-163-0305969-00

PATIENT
  Age: 48 Year
  Sex: Female
  Weight: 52.1637 kg

DRUGS (4)
  1. HUMIRA [Suspect]
     Indication: RHEUMATOID ARTHRITIS
     Dosage: 40 MG, 1 IN 2 WK, SUBCUTANEOUS
     Route: 058
     Dates: start: 20030101, end: 20050501
  2. PREDNISONE [Concomitant]
  3. METHOTREXATE [Concomitant]
  4. ESTROGENS CONJUGATED [Concomitant]

REACTIONS (2)
  - BACK PAIN [None]
  - CHEST PAIN [None]
